FAERS Safety Report 8448281-1 (Version None)
Quarter: 2012Q2

REPORT INFORMATION
  Report Type: 
  Country: None (occurrence: None)
  Receive Date: 20120619
  Receipt Date: 20120614
  Transmission Date: 20120825
  Serious: Yes (Other)
  Sender: FDA-Public Use
  Company Number: US-PFIZER INC-2012144275

PATIENT
  Sex: Female
  Weight: 77.1 kg

DRUGS (3)
  1. NEURONTIN [Suspect]
     Indication: NECK PAIN
     Dosage: 300 MG, 3X/DAY
     Route: 048
  2. NEURONTIN [Suspect]
     Indication: BACK PAIN
  3. LORTAB [Concomitant]
     Dosage: UNK

REACTIONS (2)
  - LOSS OF CONSCIOUSNESS [None]
  - LOWER LIMB FRACTURE [None]
